FAERS Safety Report 7177299-4 (Version None)
Quarter: 2010Q4

REPORT INFORMATION
  Report Type: 
  Country: None (occurrence: None)
  Receive Date: 20101123
  Receipt Date: 20100929
  Transmission Date: 20110411
  Serious: No
  Sender: FDA-Public Use
  Company Number: 016757

PATIENT
  Sex: Female
  Weight: 45.4 kg

DRUGS (3)
  1. CIMZIA [Suspect]
     Indication: CROHN'S DISEASE
     Dosage: 1 SHOT IN 2 WEEKS SUBCUTANEOUS
     Route: 058
     Dates: start: 20100401
  2. VITAMINS NOS [Concomitant]
  3. ASCORBIC ACID [Concomitant]

REACTIONS (8)
  - ARTHRITIS [None]
  - BURSITIS [None]
  - FIBROMYALGIA [None]
  - INJECTION SITE HAEMATOMA [None]
  - INJECTION SITE PAIN [None]
  - INSOMNIA [None]
  - PAIN [None]
  - PAIN IN EXTREMITY [None]
